FAERS Safety Report 7530214-3 (Version None)
Quarter: 2011Q2

REPORT INFORMATION
  Report Type: 
  Country: None (occurrence: None)
  Receive Date: 20110607
  Receipt Date: 20110530
  Transmission Date: 20111010
  Serious: Yes (Other)
  Sender: FDA-Public Use
  Company Number: PHHY2011GR46876

PATIENT
  Age: 46 Year
  Sex: Male

DRUGS (3)
  1. AZATHIOPRINE [Suspect]
     Dosage: 50 MG, UNK
  2. PREDNISOLONE [Suspect]
     Dosage: 20 MG, UNK
  3. PREDNISOLONE [Suspect]
     Dosage: 50 MG, UNK

REACTIONS (9)
  - C-REACTIVE PROTEIN INCREASED [None]
  - ACUTE GENERALISED EXANTHEMATOUS PUSTULOSIS [None]
  - PYREXIA [None]
  - RASH PUSTULAR [None]
  - NEUTROPHILIA [None]
  - LYMPHOCYTIC INFILTRATION [None]
  - LEUKOCYTOSIS [None]
  - ARTHRALGIA [None]
  - SKIN OEDEMA [None]
